FAERS Safety Report 6613094-X (Version None)
Quarter: 2010Q1

REPORT INFORMATION
  Report Type: 
  Country: None (occurrence: None)
  Receive Date: 20100223
  Receipt Date: 20100203
  Transmission Date: 20100710
  Serious: Yes (Other)
  Sender: FDA-Public Use
  Company Number: IPC201002-000005

PATIENT
  Age: 21 Year
  Sex: Female

DRUGS (5)
  1. HYDROXYCHLOROQUINE SULFATE (HYDROXYCHLOROQUINE SULFATE) (HYDROXYCHLORO [Suspect]
  2. PREDNISOLONE [Suspect]
  3. MYCOPHENOLATE MOFETIL [Suspect]
  4. ASPIRIN [Concomitant]
  5. AZATHIOPRINE [Concomitant]

REACTIONS (2)
  - BONE INFARCTION [None]
  - OSTEONECROSIS [None]
